FAERS Safety Report 16945499 (Version 1)
Quarter: 2019Q4

REPORT INFORMATION
  Report Type: Spontaneous
  Country: GB (occurrence: GB)
  Receive Date: 20191021
  Receipt Date: 20191021
  Transmission Date: 20200122
  Serious: Yes (Life-Threatening)
  Sender: FDA-Public Use
  Company Number: None

PATIENT
  Age: 74 Year
  Sex: Female
  Weight: 54 kg

DRUGS (1)
  1. ULTRA CHLORASEPTIC (BENZOCAINE) [Suspect]
     Active Substance: BENZOCAINE
     Indication: OROPHARYNGEAL PAIN
     Dosage: ?          OTHER ROUTE:SPRAY?
     Dates: start: 20191021, end: 20191021

REACTIONS (2)
  - Choking [None]
  - Dyspnoea [None]

NARRATIVE: CASE EVENT DATE: 20191021
